FAERS Safety Report 6052524-1 (Version None)
Quarter: 2009Q1

REPORT INFORMATION
  Report Type: 
  Country: None (occurrence: None)
  Receive Date: 20090121
  Receipt Date: 20090107
  Transmission Date: 20090719
  Serious: Yes (Other)
  Sender: FDA-Public Use
  Company Number: DSU-2009-00030

PATIENT
  Sex: Female

DRUGS (1)
  1. WELCHOL [Suspect]
     Indication: HYPERCHOLESTEROLAEMIA
     Dosage: 3750 MG (3750 MG,QD), PER ORAL
     Route: 048

REACTIONS (2)
  - DYSPHAGIA [None]
  - FOREIGN BODY TRAUMA [None]
